FAERS Safety Report 9442755 (Version 1)
Quarter: 2013Q3

REPORT INFORMATION
  Report Type: Spontaneous
  Country: US (occurrence: US)
  Receive Date: 20130806
  Receipt Date: 20130806
  Transmission Date: 20140515
  Serious: No
  Sender: FDA-Public Use
  Company Number: US-ABBOTT-12P-163-0992044-00

PATIENT
  Age: 39 Year
  Sex: Male
  Weight: 72.64 kg

DRUGS (1)
  1. DEPAKOTE ER [Suspect]
     Indication: EPILEPSY
     Dates: start: 201111, end: 20120921

REACTIONS (1)
  - Unevaluable event [Recovering/Resolving]
